FAERS Safety Report 7562819-8 (Version None)
Quarter: 2011Q2

REPORT INFORMATION
  Report Type: 
  Country: None (occurrence: None)
  Receive Date: 20110615
  Receipt Date: 20110606
  Transmission Date: 20111010
  Serious: Yes (Death)
  Sender: FDA-Public Use
  Company Number: DKLU1071072

PATIENT
  Age: 21 Month
  Sex: Female

DRUGS (2)
  1. SABRIL [Suspect]
     Indication: GRAND MAL CONVULSION
     Dosage: 1 ML MILLILITER(S), AM, ORAL; 2 ML MILLILITER(S), PM ORAL
     Route: 048
     Dates: start: 20101007, end: 20110526
  2. SABRIL [Suspect]
     Indication: GRAND MAL CONVULSION
     Dosage: 1 ML MILLILITER(S), AM, ORAL; 2 ML MILLILITER(S), PM ORAL
     Route: 048
     Dates: start: 20101007, end: 20110526

REACTIONS (2)
  - SEPSIS [None]
  - CARDIO-RESPIRATORY ARREST [None]
